FAERS Safety Report 6613670-4 (Version None)
Quarter: 2010Q1

REPORT INFORMATION
  Report Type: 
  Country: None (occurrence: None)
  Receive Date: 20100304
  Receipt Date: 20100223
  Transmission Date: 20100710
  Serious: Yes (Other)
  Sender: FDA-Public Use
  Company Number: DK-ELI_LILLY_AND_COMPANY-DK201002007325

PATIENT
  Sex: Male
  Weight: 92 kg

DRUGS (4)
  1. EXENATIDE [Suspect]
     Indication: TYPE 2 DIABETES MELLITUS
     Dosage: 5 UG, DAILY (1/D)
     Route: 058
     Dates: start: 20080704, end: 20080725
  2. APROVEL [Concomitant]
     Indication: HYPERTENSION
     Dosage: 300 MG, DAILY (1/D)
     Route: 048
     Dates: start: 20080611
  3. ACTRAPID /00030501/ [Concomitant]
     Indication: TYPE 2 DIABETES MELLITUS
     Dosage: 45 IU, 3/D
     Route: 058
     Dates: start: 20031203
  4. INSULATARD [Concomitant]
     Indication: TYPE 2 DIABETES MELLITUS
     Dosage: 60 IU, DAILY (1/D)
     Route: 058
     Dates: start: 20031203

REACTIONS (3)
  - CEREBRAL INFARCTION [None]
  - LACUNAR INFARCTION [None]
  - OFF LABEL USE [None]
